APPROVED DRUG PRODUCT: BRICANYL
Active Ingredient: TERBUTALINE SULFATE
Strength: 2.5MG
Dosage Form/Route: TABLET;ORAL
Application: N017618 | Product #001
Applicant: SANOFI AVENTIS US LLC
Approved: Approved Prior to Jan 1, 1982 | RLD: No | RS: No | Type: DISCN